FAERS Safety Report 11569442 (Version 1)
Quarter: 2015Q3

REPORT INFORMATION
  Report Type: Spontaneous
  Country: CA (occurrence: CA)
  Receive Date: 20150929
  Receipt Date: 20150929
  Transmission Date: 20151125
  Serious: Yes (Other)
  Sender: FDA-Public Use
  Company Number: CA-PFIZER INC-2015319058

PATIENT
  Age: 59 Year
  Sex: Female

DRUGS (6)
  1. IBUPROFEN. [Concomitant]
     Active Substance: IBUPROFEN
     Indication: HEADACHE
     Dosage: UNK
  2. EFFEXOR XR [Suspect]
     Active Substance: VENLAFAXINE HYDROCHLORIDE
     Indication: ANXIETY
     Dosage: 75 MG, 1X/DAY
     Route: 048
     Dates: start: 2015, end: 20150811
  3. EFFEXOR XR [Suspect]
     Active Substance: VENLAFAXINE HYDROCHLORIDE
     Dosage: 112.5 MG, 1X/DAY
     Route: 048
     Dates: start: 20150812, end: 20150913
  4. EFFEXOR XR [Suspect]
     Active Substance: VENLAFAXINE HYDROCHLORIDE
     Dosage: 75 MG, UNK
     Route: 048
     Dates: start: 20150914, end: 201509
  5. EFFEXOR XR [Suspect]
     Active Substance: VENLAFAXINE HYDROCHLORIDE
     Indication: DEPRESSION
     Dosage: 37.5 MG, 1X/DAY
     Route: 048
     Dates: start: 201507, end: 2015
  6. EFFEXOR XR [Suspect]
     Active Substance: VENLAFAXINE HYDROCHLORIDE
     Dosage: 37.5 MG, UNK
     Route: 048
     Dates: start: 201509

REACTIONS (14)
  - Loss of consciousness [Unknown]
  - Abnormal dreams [Not Recovered/Not Resolved]
  - Blood pressure decreased [Recovered/Resolved]
  - Nausea [Recovering/Resolving]
  - Muscle tightness [Not Recovered/Not Resolved]
  - Headache [Not Recovered/Not Resolved]
  - Tremor [Not Recovered/Not Resolved]
  - Dizziness [Unknown]
  - Dry mouth [Not Recovered/Not Resolved]
  - Feeling abnormal [Recovering/Resolving]
  - Confusional state [Recovering/Resolving]
  - Tinnitus [Recovering/Resolving]
  - Memory impairment [Recovering/Resolving]
  - Impaired driving ability [Not Recovered/Not Resolved]

NARRATIVE: CASE EVENT DATE: 2015
